FAERS Safety Report 8001511-2 (Version None)
Quarter: 2011Q4

REPORT INFORMATION
  Report Type: 
  Country: None (occurrence: None)
  Receive Date: 20111219
  Receipt Date: 20111205
  Transmission Date: 20120403
  Serious: Yes (Life-Threatening, Hospitalization)
  Sender: FDA-Public Use
  Company Number: 2011AP002493

PATIENT
  Age: 30 Year
  Sex: Female

DRUGS (3)
  1. DILTIAZEM [Suspect]
     Indication: HYPERTROPHIC CARDIOMYOPATHY
  2. METOPROLOL SUCCINATE [Suspect]
     Indication: HYPERTROPHIC CARDIOMYOPATHY
  3. AMIODARONE HCL [Suspect]
     Indication: HYPERTROPHIC CARDIOMYOPATHY

REACTIONS (9)
  - ABDOMINAL PAIN [None]
  - EJECTION FRACTION DECREASED [None]
  - TREATMENT FAILURE [None]
  - BLOOD GLUCOSE INCREASED [None]
  - RENAL FAILURE [None]
  - CARDIOGENIC SHOCK [None]
  - MULTIPLE DRUG OVERDOSE [None]
  - HEART RATE DECREASED [None]
  - CARDIAC HYPERTROPHY [None]
